FAERS Safety Report 4391770-X (Version None)
Quarter: 2004Q3

REPORT INFORMATION
  Report Type: 
  Country: None (occurrence: None)
  Receive Date: 20040702
  Receipt Date: 20040428
  Transmission Date: 20050211
  Serious: Yes (Other)
  Sender: FDA-Public Use
  Company Number: 2004UW08698

PATIENT
  Age: 43 Year
  Sex: Male
  Weight: 92.9874 kg

DRUGS (5)
  1. CRESTOR [Suspect]
     Indication: HYPERCHOLESTEROLAEMIA
     Dosage: 10 MG QD PO
     Route: 048
     Dates: start: 20040301
  2. PAXIL [Concomitant]
  3. VALIUM [Concomitant]
  4. ENALAPRIL MALEATE [Concomitant]
  5. TOPROL-XL [Concomitant]

REACTIONS (2)
  - DRY SKIN [None]
  - PRURITUS [None]
